FAERS Safety Report 8041682-5 (Version None)
Quarter: 2012Q1

REPORT INFORMATION
  Report Type: 
  Country: None (occurrence: None)
  Receive Date: 20120112
  Receipt Date: 20120103
  Transmission Date: 20120608
  Serious: Yes (Other)
  Sender: FDA-Public Use
  Company Number: US-EISAI INC-E3810-05225-SPO-US

PATIENT
  Age: 28 Year
  Sex: Female

DRUGS (1)
  1. ACIPHEX [Suspect]
     Route: 048

REACTIONS (1)
  - RESPIRATORY ARREST [None]
